FAERS Safety Report 11149429 (Version 3)
Quarter: 2015Q3

REPORT INFORMATION
  Report Type: Spontaneous
  Country: PT (occurrence: PT)
  Receive Date: 20150529
  Receipt Date: 20150731
  Transmission Date: 20151125
  Serious: Yes (Other)
  Sender: FDA-Public Use
  Company Number: PT-GILEAD-2015-0155630

PATIENT
  Age: 47 Year
  Sex: Male

DRUGS (6)
  1. HARVONI [Suspect]
     Active Substance: LEDIPASVIR\SOFOSBUVIR
     Indication: HEPATITIS C
     Dosage: UNK
     Route: 065
     Dates: start: 20150407
  2. OMEPRAZOL                          /00661201/ [Concomitant]
     Active Substance: OMEPRAZOLE
     Indication: VARICES OESOPHAGEAL
  3. INDERAL [Suspect]
     Active Substance: PROPRANOLOL HYDROCHLORIDE
     Dosage: 10 MG, QD
     Route: 065
  4. INDERAL [Suspect]
     Active Substance: PROPRANOLOL HYDROCHLORIDE
     Indication: PROPHYLAXIS
     Dosage: 30 MG, UNK
     Route: 065
  5. INDERAL [Concomitant]
     Active Substance: PROPRANOLOL HYDROCHLORIDE
     Dosage: UNK
     Dates: start: 201502
  6. FOLICIL [Concomitant]
     Active Substance: FOLIC ACID

REACTIONS (4)
  - Unevaluable event [Unknown]
  - Heart rate decreased [Recovered/Resolved]
  - Oesophageal varices haemorrhage [Unknown]
  - Ascites [Unknown]

NARRATIVE: CASE EVENT DATE: 20150409
